FAERS Safety Report 17932930 (Version 1)
Quarter: 2020Q2

REPORT INFORMATION
  Report Type: Spontaneous
  Country: US (occurrence: US)
  Receive Date: 20200623
  Receipt Date: 20200623
  Transmission Date: 20200714
  Serious: No
  Sender: FDA-Public Use
  Company Number: US-PFIZER INC-2020240724

PATIENT
  Sex: Female
  Weight: 58.97 kg

DRUGS (1)
  1. NEURONTIN [Suspect]
     Active Substance: GABAPENTIN
     Dosage: UNK

REACTIONS (9)
  - Muscle tightness [Unknown]
  - Tremor [Unknown]
  - Muscular weakness [Unknown]
  - Pain [Unknown]
  - Aggression [Unknown]
  - Gait disturbance [Unknown]
  - Drug hypersensitivity [Unknown]
  - Drug clearance decreased [Unknown]
  - Confusional state [Unknown]
